FAERS Safety Report 6064325-9 (Version None)
Quarter: 2009Q1

REPORT INFORMATION
  Report Type: 
  Country: None (occurrence: None)
  Receive Date: 20090203
  Receipt Date: 20090203
  Transmission Date: 20090719
  Serious: No
  Sender: FDA-Public Use
  Company Number: None

PATIENT

DRUGS (2)
  1. PULMICORT [Suspect]
  2. ALBUTEROL [Suspect]

REACTIONS (4)
  - DRUG INEFFECTIVE [None]
  - DYSPNOEA [None]
  - IMPAIRED WORK ABILITY [None]
  - PRODUCT QUALITY ISSUE [None]
